FAERS Safety Report 7321581-4 (Version None)
Quarter: 2011Q1

REPORT INFORMATION
  Report Type: 
  Country: None (occurrence: None)
  Receive Date: 20110228
  Receipt Date: 20100615
  Transmission Date: 20110831
  Serious: No
  Sender: FDA-Public Use
  Company Number: A0865294A

PATIENT
  Age: 24 Year
  Sex: Female

DRUGS (3)
  1. VALTREX [Suspect]
     Indication: ANTIVIRAL PROPHYLAXIS
     Dosage: 500MG PER DAY
     Route: 048
     Dates: start: 20100601
  2. BIRTH CONTROL PILLS [Concomitant]
  3. NASONEX [Concomitant]

REACTIONS (1)
  - DRUG INEFFECTIVE [None]
